FAERS Safety Report 5695892-2 (Version None)
Quarter: 2008Q2

REPORT INFORMATION
  Report Type: 
  Country: None (occurrence: None)
  Receive Date: 20080407
  Receipt Date: 20080327
  Transmission Date: 20081010
  Serious: Yes (Other)
  Sender: FDA-Public Use
  Company Number: SE-JNJFOC-20080304339

PATIENT
  Sex: Female
  Weight: 2.76 kg

DRUGS (5)
  1. REMICADE [Suspect]
     Route: 050
  2. REMICADE [Suspect]
     Indication: DRUG EXPOSURE DURING PREGNANCY
     Route: 050
  3. AZATHIOPRINE [Concomitant]
  4. ASACOL [Concomitant]
  5. FURADANTIN [Concomitant]

REACTIONS (2)
  - ECZEMA [None]
  - PREMATURE BABY [None]
